FAERS Safety Report 9529816 (Version 1)
Quarter: 2013Q3

REPORT INFORMATION
  Report Type: Spontaneous
  Country: US (occurrence: US)
  Receive Date: 20130917
  Receipt Date: 20130917
  Transmission Date: 20140515
  Serious: No
  Sender: FDA-Public Use
  Company Number: US-009507513-1309USA007437

PATIENT
  Sex: Female

DRUGS (1)
  1. DR. SCHOLLS CORN REMOVERS [Suspect]
     Indication: SKIN IRRITATION
     Dosage: UNK, UNKNOWN
     Route: 061

REACTIONS (2)
  - Skin discolouration [Not Recovered/Not Resolved]
  - Off label use [Unknown]
